FAERS Safety Report 4444800-0 (Version None)
Quarter: 2004Q3

REPORT INFORMATION
  Report Type: 
  Country: None (occurrence: None)
  Receive Date: 20040909
  Receipt Date: 20040901
  Transmission Date: 20050211
  Serious: Yes (Disabling)
  Sender: FDA-Public Use
  Company Number: GB-MERCK-0409GBR00032

PATIENT
  Age: 44 Year
  Sex: Female

DRUGS (17)
  1. ALBUTEROL [Concomitant]
     Route: 055
  2. ALVERINE CITRATE [Concomitant]
     Route: 048
  3. CETIRIZINE HYDROCHLORIDE [Concomitant]
     Route: 065
  4. CLOPIDOGREL BISULFATE [Concomitant]
     Route: 065
  5. DICLOFENAC SODIUM [Concomitant]
     Route: 065
  6. ZETIA [Suspect]
     Route: 048
     Dates: start: 20040628, end: 20040101
  7. FLUTICASONE PROPIONATE [Concomitant]
     Route: 055
  8. FUROSEMIDE [Concomitant]
     Route: 065
  9. INSULIN HUMAN [Concomitant]
     Route: 065
  10. ISOSORBIDE MONONITRATE [Concomitant]
     Route: 065
  11. LISINOPRIL [Concomitant]
     Route: 065
  12. MISOPROSTOL [Concomitant]
     Route: 065
  13. NICARDIPINE HYDROCHLORIDE [Concomitant]
     Route: 048
  14. NITROGLYCERIN [Concomitant]
     Route: 055
  15. OMEPRAZOLE [Concomitant]
     Route: 048
  16. SALMETEROL [Concomitant]
     Route: 055
  17. ZAFIRLUKAST [Concomitant]
     Route: 065

REACTIONS (2)
  - MUSCULAR WEAKNESS [None]
  - MUSCULOSKELETAL DISCOMFORT [None]
